FAERS Safety Report 15629949 (Version 1)
Quarter: 2018Q4

REPORT INFORMATION
  Report Type: Spontaneous
  Country: BE (occurrence: BE)
  Receive Date: 20181117
  Receipt Date: 20181117
  Transmission Date: 20190205
  Serious: Yes (Life-Threatening, Hospitalization)
  Sender: FDA-Public Use
  Company Number: BE-MYLANLABS-2018M1085817

PATIENT
  Age: 21 Year
  Sex: Female

DRUGS (1)
  1. NIFEDIPINE. [Suspect]
     Active Substance: NIFEDIPINE
     Indication: TOCOLYSIS
     Dosage: 10MG 4 TIMES IN ONE HOUR
     Route: 065

REACTIONS (2)
  - Cardiogenic shock [Recovering/Resolving]
  - Maternal exposure during pregnancy [Recovering/Resolving]
